FAERS Safety Report 25225986 (Version 3)
Quarter: 2025Q3

REPORT INFORMATION
  Report Type: Spontaneous
  Country: US (occurrence: US)
  Receive Date: 20250422
  Receipt Date: 20250707
  Transmission Date: 20251021
  Serious: No
  Sender: SANOFI AVENTIS
  Company Number: US-SA-2025SA115017

PATIENT
  Age: 14 Year
  Sex: Male

DRUGS (12)
  1. DUPIXENT [Suspect]
     Active Substance: DUPILUMAB
     Indication: Eczema
     Route: 058
     Dates: start: 20250217, end: 20250217
  2. DUPIXENT [Suspect]
     Active Substance: DUPILUMAB
     Dosage: 300 MG, QOW
     Route: 058
     Dates: start: 20250304
  3. DUPIXENT [Suspect]
     Active Substance: DUPILUMAB
     Indication: Dermatitis atopic
     Dosage: 300 MG, QOW
     Route: 058
     Dates: start: 2025
  4. DUPIXENT [Suspect]
     Active Substance: DUPILUMAB
     Indication: Eczema
  5. EPINEPHRINE [Concomitant]
     Active Substance: EPINEPHRINE
  6. EUCRISA [Concomitant]
     Active Substance: CRISABOROLE
  7. CLOBETASOL [Concomitant]
     Active Substance: CLOBETASOL
  8. CLINDAMYCIN [Concomitant]
     Active Substance: CLINDAMYCIN
  9. BETAMETHASONE [Concomitant]
     Active Substance: BETAMETHASONE
  10. ADAPALENE [Concomitant]
     Active Substance: ADAPALENE
  11. TRIAMCINOLONE [Concomitant]
     Active Substance: TRIAMCINOLONE
  12. DESONIDE [Concomitant]
     Active Substance: DESONIDE

REACTIONS (5)
  - Gastroenteritis viral [Unknown]
  - Injection site haemorrhage [Unknown]
  - Injection site pain [Recovered/Resolved]
  - Injection site swelling [Recovered/Resolved]
  - Product preparation error [Unknown]

NARRATIVE: CASE EVENT DATE: 20250101
